FAERS Safety Report 23538110 (Version 1)
Quarter: 2024Q1

REPORT INFORMATION
  Report Type: Spontaneous
  Country: ES (occurrence: ES)
  Receive Date: 20240219
  Receipt Date: 20240219
  Transmission Date: 20240409
  Serious: Yes (Hospitalization)
  Sender: FDA-Public Use
  Company Number: None

PATIENT
  Age: 34 Year
  Sex: Female

DRUGS (7)
  1. DULOXETINE [Suspect]
     Active Substance: DULOXETINE
     Indication: Anxiety
     Dosage: 60.0 MG EVERY 24 HOURS, DULOXETINE (7421A)
     Route: 048
     Dates: start: 20231004, end: 20231116
  2. LEVOTHYROXINE SODIUM [Concomitant]
     Active Substance: LEVOTHYROXINE SODIUM
     Indication: Product used for unknown indication
     Dosage: 100 TABLETS, 100.0 MCG A-DE
     Route: 048
     Dates: start: 20220908
  3. CYANOCOBALAMIN\FOLIC ACID [Concomitant]
     Active Substance: CYANOCOBALAMIN\FOLIC ACID
     Indication: Product used for unknown indication
     Dosage: 400/2 MICROGRAMS TABLETS, 28 TABLETS,1.0 COMP A-DE
     Route: 048
     Dates: start: 20220908
  4. DIAZEPAM [Concomitant]
     Active Substance: DIAZEPAM
     Indication: Conversion disorder
     Dosage: 30 TABLETS, 10.0 MG EC
     Route: 048
     Dates: start: 20220510
  5. PAROXETINE [Suspect]
     Active Substance: PAROXETINE
     Indication: Anxiety
     Dosage: 150.0 MG EVERY 24 HOURS, PAROXETINE (2586A)
     Route: 048
     Dates: start: 20231004, end: 20231108
  6. LYRICA [Concomitant]
     Active Substance: PREGABALIN
     Indication: Conversion disorder
     Dosage: 56 CAPSULES, DECOCE
     Route: 065
     Dates: start: 20230529
  7. CRESTOR [Concomitant]
     Active Substance: ROSUVASTATIN CALCIUM
     Indication: Hypothyroidism
     Dosage: 28 TABLETS, 10.0 MG CE
     Route: 048
     Dates: start: 20211221

REACTIONS (3)
  - Serotonin syndrome [Recovered/Resolved]
  - Product administration error [Recovered/Resolved]
  - Medication error [Recovered/Resolved]

NARRATIVE: CASE EVENT DATE: 20231108
